FAERS Safety Report 7327932-9 (Version None)
Quarter: 2011Q1

REPORT INFORMATION
  Report Type: 
  Country: None (occurrence: None)
  Receive Date: 20110303
  Receipt Date: 20110224
  Transmission Date: 20110831
  Serious: Yes (Other)
  Sender: FDA-Public Use
  Company Number: JP-JNJFOC-20100603750

PATIENT
  Sex: Male
  Weight: 51 kg

DRUGS (24)
  1. OLMETEC [Concomitant]
     Indication: HYPERTENSION
     Route: 048
  2. URIEF [Concomitant]
     Indication: BENIGN PROSTATIC HYPERPLASIA
     Route: 048
  3. DUROTEP MT PATCH [Suspect]
     Indication: CANCER PAIN
     Route: 062
  4. OPSO [Suspect]
     Route: 048
  5. PURSENNID [Concomitant]
     Indication: CANCER PAIN
     Route: 048
  6. WARFARIN POTASSIUM [Interacting]
     Route: 048
  7. GLUFAST [Concomitant]
     Indication: TYPE 2 DIABETES MELLITUS
     Route: 048
  8. LOXONIN [Concomitant]
     Indication: CANCER PAIN
     Route: 048
  9. OPSO [Suspect]
     Indication: CANCER PAIN
     Route: 048
  10. OPSO [Suspect]
     Route: 048
  11. OPSO [Suspect]
     Route: 048
  12. MAGNESIUM OXIDE [Concomitant]
     Indication: CANCER PAIN
     Route: 048
  13. MEVALOTIN [Concomitant]
     Indication: HYPERLIPIDAEMIA
     Route: 048
  14. DUROTEP MT PATCH [Suspect]
     Route: 062
  15. DUROTEP MT PATCH [Suspect]
     Route: 062
  16. OPSO [Suspect]
     Route: 048
  17. OPSO [Suspect]
     Route: 048
  18. GASTER D [Concomitant]
     Route: 048
  19. MUCOSTA [Concomitant]
     Route: 048
  20. LASIX [Concomitant]
     Route: 048
  21. HERBESSER R [Concomitant]
     Indication: PRINZMETAL ANGINA
     Route: 048
  22. DUROTEP MT PATCH [Suspect]
     Route: 062
  23. WARFARIN POTASSIUM [Interacting]
     Indication: ATRIAL FIBRILLATION
     Route: 048
  24. OPSO [Suspect]
     Route: 048

REACTIONS (3)
  - PROTHROMBIN TIME PROLONGED [None]
  - DRUG EFFECT INCREASED [None]
  - DRUG INTERACTION [None]
